FAERS Safety Report 12495303 (Version 6)
Quarter: 2016Q4

REPORT INFORMATION
  Report Type: Spontaneous
  Country: US (occurrence: US)
  Receive Date: 20160624
  Receipt Date: 20161205
  Transmission Date: 20170207
  Serious: Yes (Other)
  Sender: FDA-Public Use
  Company Number: US-PFIZER INC-2016312705

PATIENT
  Age: 55 Year
  Sex: Female
  Weight: 104.31 kg

DRUGS (27)
  1. LISINOPRIL. [Concomitant]
     Active Substance: LISINOPRIL
     Indication: HYPERTENSION
     Dosage: 5 MG, 1X/DAY
     Route: 048
     Dates: start: 1989
  2. TRIAMTERENE. [Concomitant]
     Active Substance: TRIAMTERENE
     Indication: VENOUS INJURY
     Dosage: UNK
     Dates: start: 1989
  3. K-DUR [Concomitant]
     Active Substance: POTASSIUM CHLORIDE
     Indication: BLOOD POTASSIUM DECREASED
     Dosage: 10 MEQ, 2X/DAY
     Route: 048
     Dates: start: 201602
  4. BYDUREON [Concomitant]
     Active Substance: EXENATIDE
     Indication: DIABETES MELLITUS
     Dosage: 2 MG, WEEKLY (ONCE A WEEK)
     Route: 058
     Dates: start: 2014
  5. TRIAMTERENE. [Concomitant]
     Active Substance: TRIAMTERENE
     Indication: PERIPHERAL SWELLING
     Dosage: 1X/DAY (DOSE WAS 37.25/5 BUT DID NOT KNOW ITS UNIT)
     Route: 048
     Dates: start: 2003
  6. FLUXAL [Concomitant]
     Indication: IMMUNE SYSTEM DISORDER
  7. LYRICA [Suspect]
     Active Substance: PREGABALIN
     Indication: FIBROMYALGIA
     Dosage: 50 MG, DAILY(AT (BED TIME)
     Route: 048
     Dates: start: 201306
  8. LYRICA [Suspect]
     Active Substance: PREGABALIN
     Dosage: 100 MG, 2X/DAY
     Route: 048
  9. LYRICA [Suspect]
     Active Substance: PREGABALIN
     Dosage: 50 MG,  TWO CAPSULES TWICE A DAY \
     Route: 048
     Dates: start: 20160613
  10. TRIAMTERENE. [Concomitant]
     Active Substance: TRIAMTERENE
     Indication: ULCER
  11. FLUOXETINE [Concomitant]
     Active Substance: FLUOXETINE HYDROCHLORIDE
     Indication: FIBROMYALGIA
     Dosage: 60 MG, 2X/DAY
     Route: 048
     Dates: start: 201602
  12. HCTZ [Concomitant]
     Active Substance: HYDROCHLOROTHIAZIDE
     Indication: HYPERTENSION
     Dosage: UNK
  13. LYRICA [Suspect]
     Active Substance: PREGABALIN
     Dosage: 100 MG, 2X/DAY
     Route: 048
  14. BYDUREON [Concomitant]
     Active Substance: EXENATIDE
     Dosage: 10 MG, WEEKLY, (ONCE A WEEK)
     Route: 058
  15. DRISTAN 12 HR NASAL SPRAY [Concomitant]
     Active Substance: OXYMETAZOLINE HYDROCHLORIDE
     Indication: PRURITUS
     Dosage: 60 MG, 1X/DAY
     Route: 048
     Dates: start: 2013
  16. ENBREL [Concomitant]
     Active Substance: ETANERCEPT
     Indication: SYSTEMIC LUPUS ERYTHEMATOSUS
  17. FLUOXETINE [Concomitant]
     Active Substance: FLUOXETINE HYDROCHLORIDE
     Dosage: UNK
     Dates: start: 2014
  18. OMEPRAZOLE. [Concomitant]
     Active Substance: OMEPRAZOLE
     Indication: GASTROOESOPHAGEAL REFLUX DISEASE
     Dosage: 40 MG, 2X/DAY
  19. VISTARIL [Concomitant]
     Active Substance: HYDROXYZINE PAMOATE
     Indication: PRURITUS
     Dosage: 1X/DAY, AT NIGHT
  20. PREDNISONE. [Concomitant]
     Active Substance: PREDNISONE
     Dosage: 5 MG, 1X/DAY, (ONCE A DAY)
  21. LYRICA [Suspect]
     Active Substance: PREGABALIN
     Dosage: 100 MG, 1X/DAY
     Route: 048
     Dates: start: 20160521
  22. ENBREL [Concomitant]
     Active Substance: ETANERCEPT
     Indication: RHEUMATOID ARTHRITIS
     Dosage: 50 MG, WEEKLY (ONCE A WEEK)
     Route: 058
     Dates: start: 2014
  23. FLUXAL [Concomitant]
     Indication: PROPHYLAXIS
     Dosage: 250 MG, 2X/DAY
     Route: 048
     Dates: start: 201511
  24. ORENCIA [Concomitant]
     Active Substance: ABATACEPT
     Indication: RHEUMATOID ARTHRITIS
     Dosage: 135 MG, WEEKLY, ONCE A WEEK SUBCUTANEOUSLY
     Route: 058
  25. VALTREX [Concomitant]
     Active Substance: VALACYCLOVIR HYDROCHLORIDE
     Indication: ORAL PAIN
     Dosage: 500 MG, 1X/DAY
     Route: 048
     Dates: start: 2013
  26. LYRICA [Suspect]
     Active Substance: PREGABALIN
     Dosage: 50 MG, DAILY (AT AM)
     Route: 048
     Dates: start: 201408
  27. PLAQUINOL [Concomitant]
     Active Substance: HYDROXYCHLOROQUINE SULFATE
     Indication: SYSTEMIC LUPUS ERYTHEMATOSUS
     Dosage: 400 MG, 1X/DAY, (TWO TABLETS ONCE A DAY AT BED TIME)
     Route: 048
     Dates: start: 2011

REACTIONS (8)
  - Decreased appetite [Recovered/Resolved]
  - Pleurisy [Not Recovered/Not Resolved]
  - Drug dose omission [Recovered/Resolved]
  - Feeling abnormal [Unknown]
  - Malaise [Unknown]
  - Hypokalaemia [Unknown]
  - Somnolence [Recovering/Resolving]
  - Nausea [Recovered/Resolved]

NARRATIVE: CASE EVENT DATE: 20160609
